FAERS Safety Report 6559791-6 (Version None)
Quarter: 2010Q1

REPORT INFORMATION
  Report Type: 
  Country: None (occurrence: None)
  Receive Date: 20100129
  Receipt Date: 20090905
  Transmission Date: 20100710
  Serious: No
  Sender: FDA-Public Use
  Company Number: US-ABBOTT-09P-163-0596606-00

PATIENT
  Sex: Female
  Weight: 90.8 kg

DRUGS (12)
  1. HUMIRA [Suspect]
     Indication: ANKYLOSING SPONDYLITIS
     Route: 058
     Dates: start: 20090501, end: 20090904
  2. MEDROL [Concomitant]
     Indication: DRUG USE FOR UNKNOWN INDICATION
     Route: 048
     Dates: end: 20090908
  3. MEDROL [Concomitant]
     Route: 048
  4. SYNTHROID [Concomitant]
     Indication: HYPOTHYROIDISM
     Route: 048
  5. CYTOMEL [Concomitant]
     Indication: DRUG USE FOR UNKNOWN INDICATION
     Route: 048
  6. CELEBREX [Concomitant]
     Indication: DRUG USE FOR UNKNOWN INDICATION
     Route: 048
  7. SULFASALAZINE [Concomitant]
     Indication: DRUG USE FOR UNKNOWN INDICATION
     Route: 048
  8. VITAMIN D [Concomitant]
     Indication: VITAMIN SUPPLEMENTATION
     Route: 048
  9. LYRICA [Concomitant]
     Indication: NEUROPATHY PERIPHERAL
     Route: 048
  10. LYRICA [Concomitant]
     Indication: ANKYLOSING SPONDYLITIS
  11. SINGULAIR [Concomitant]
     Indication: ASTHMA
     Route: 048
  12. MAXALT [Concomitant]
     Indication: MIGRAINE

REACTIONS (11)
  - ARTHRALGIA [None]
  - ASTHENIA [None]
  - COMPUTERISED TOMOGRAM ABNORMAL [None]
  - DIARRHOEA [None]
  - DUODENAL ULCER [None]
  - DYSPNOEA [None]
  - INFLUENZA [None]
  - MYALGIA [None]
  - NEURALGIA [None]
  - OVARIAN CYST [None]
  - PAIN [None]
